FAERS Safety Report 10446661 (Version 1)
Quarter: 2014Q3

REPORT INFORMATION
  Report Type: Spontaneous
  Country: US (occurrence: US)
  Receive Date: 20140911
  Receipt Date: 20140911
  Transmission Date: 20150326
  Serious: Yes (Hospitalization)
  Sender: FDA-Public Use
  Company Number: US-RANBAXY-2014US-85199

PATIENT
  Age: 67 Year
  Sex: Male

DRUGS (1)
  1. DONEPEZIL [Suspect]
     Active Substance: DONEPEZIL
     Indication: PRODUCT USED FOR UNKNOWN INDICATION
     Dosage: UNK
     Route: 048

REACTIONS (10)
  - Hyperhidrosis [Unknown]
  - Bradycardia [Recovered/Resolved]
  - Delirium [Unknown]
  - Hypertension [Recovering/Resolving]
  - Ileus [Unknown]
  - Intentional overdose [Unknown]
  - Vomiting [Unknown]
  - Suicide attempt [Unknown]
  - Heart rate increased [Recovering/Resolving]
  - Drug level increased [Recovered/Resolved]
